FAERS Safety Report 6240262-1 (Version None)
Quarter: 2009Q2

REPORT INFORMATION
  Report Type: 
  Country: None (occurrence: None)
  Receive Date: 20090623
  Receipt Date: 20080519
  Transmission Date: 20091009
  Serious: No
  Sender: FDA-Public Use
  Company Number: US-ASTRAZENECA-2008UW10227

PATIENT
  Age: 56 Year
  Sex: Female

DRUGS (8)
  1. PULMICORT RESPULES [Suspect]
     Indication: ASTHMA
     Dosage: 0.5MG/2ML
     Route: 055
  2. METFORMIN HCL [Concomitant]
  3. GLUCAPHAGE [Concomitant]
  4. ZOCOR [Concomitant]
  5. PREVACID [Concomitant]
  6. SINGULAIR [Concomitant]
  7. GLIMPERIDE [Concomitant]
  8. LUNESTA [Concomitant]

REACTIONS (1)
  - WEIGHT INCREASED [None]
